FAERS Safety Report 4617026-5 (Version None)
Quarter: 2005Q1

REPORT INFORMATION
  Report Type: 
  Country: None (occurrence: None)
  Receive Date: 20050321
  Receipt Date: 20050315
  Transmission Date: 20050727
  Serious: Yes (Hospitalization, Other)
  Sender: FDA-Public Use
  Company Number: SEWYE491709MAR05

PATIENT
  Age: 63 Year
  Sex: Male

DRUGS (1)
  1. CYCLOSPORINE [Suspect]
     Indication: RENAL TRANSPLANT
     Dates: start: 20050208

REACTIONS (5)
  - ANAEMIA [None]
  - COMPLICATIONS OF TRANSPLANTED KIDNEY [None]
  - LYMPHOCELE [None]
  - OEDEMA PERIPHERAL [None]
  - VEIN DISORDER [None]
